FAERS Safety Report 5456715-X (Version None)
Quarter: 2007Q3

REPORT INFORMATION
  Report Type: 
  Country: None (occurrence: None)
  Receive Date: 20070918
  Receipt Date: 20070228
  Transmission Date: 20080115
  Serious: No
  Sender: FDA-Public Use
  Company Number: US-ASTRAZENECA-2006UW25923

PATIENT
  Sex: Female
  Weight: 86.4 kg

DRUGS (4)
  1. SEROQUEL [Suspect]
     Indication: DEPRESSION
     Route: 048
     Dates: start: 20040305, end: 20060228
  2. SEROQUEL [Suspect]
     Indication: BIPOLAR DISORDER
     Route: 048
     Dates: start: 20040305, end: 20060228
  3. GEODON [Suspect]
     Dates: start: 20060801
  4. DEPAKOTE [Concomitant]
     Dates: start: 19930101

REACTIONS (5)
  - ARTERIAL STENOSIS [None]
  - ARTHRITIS [None]
  - DIABETES MELLITUS [None]
  - FIBROMYALGIA [None]
  - OSTEOARTHRITIS [None]
